FAERS Safety Report 6308944-0 (Version None)
Quarter: 2009Q3

REPORT INFORMATION
  Report Type: 
  Country: None (occurrence: None)
  Receive Date: 20090813
  Receipt Date: 20090420
  Transmission Date: 20100115
  Serious: No
  Sender: FDA-Public Use
  Company Number: US-ALLERGAN-0905500US

PATIENT
  Age: 82 Year
  Sex: Male

DRUGS (8)
  1. COMBIGAN [Suspect]
     Indication: GLAUCOMA
     Dosage: 1 GTT, BID
     Route: 047
     Dates: start: 20081201
  2. TORSEMIDE [Concomitant]
     Indication: HYPERTENSION
     Dosage: UNK, Q12H
  3. CLONIDINE [Concomitant]
     Dosage: 0.2 MG, QD
  4. CAPTOPRIL [Concomitant]
  5. THYROID THERAPY [Concomitant]
  6. ACTOS [Concomitant]
     Indication: GLUCOSE TOLERANCE IMPAIRED
  7. AMLODIPINE [Concomitant]
  8. ALLOPURINOL [Concomitant]
     Indication: GOUT

REACTIONS (2)
  - CHEST DISCOMFORT [None]
  - SWELLING [None]
